FAERS Safety Report 24687149 (Version 1)
Quarter: 2024Q4

REPORT INFORMATION
  Report Type: Spontaneous
  Country: FR (occurrence: FR)
  Receive Date: 20241202
  Receipt Date: 20241202
  Transmission Date: 20250115
  Serious: Yes (Hospitalization)
  Sender: NOVARTIS
  Company Number: None

PATIENT
  Age: 36 Year
  Sex: Female
  Weight: 66 kg

DRUGS (2)
  1. MEKINIST [Suspect]
     Active Substance: TRAMETINIB DIMETHYL SULFOXIDE
     Indication: Malignant melanoma stage III
     Dosage: 2 MG
     Route: 048
     Dates: start: 20241028, end: 20241111
  2. TAFINLAR [Suspect]
     Active Substance: DABRAFENIB MESYLATE
     Indication: Malignant melanoma stage III
     Dosage: 150 MG, Q12H
     Route: 048
     Dates: start: 20241028, end: 20241111

REACTIONS (4)
  - Pyrexia [Unknown]
  - Hypotension [Recovered/Resolved]
  - Anaemia [Unknown]
  - Prothrombin time ratio decreased [Unknown]

NARRATIVE: CASE EVENT DATE: 20241109
